FAERS Safety Report 5417993-6 (Version None)
Quarter: 2007Q3

REPORT INFORMATION
  Report Type: 
  Country: None (occurrence: None)
  Receive Date: 20070815
  Receipt Date: 20070806
  Transmission Date: 20080115
  Serious: No
  Sender: FDA-Public Use
  Company Number: TPA2007A01655

PATIENT
  Sex: Female

DRUGS (1)
  1. ROZEREM [Suspect]
     Dosage: 8  MG, HS, PER ORAL 4 MG, HS, PER ORAL
     Route: 048

REACTIONS (1)
  - SLUGGISHNESS [None]
